FAERS Safety Report 7874270-1 (Version None)
Quarter: 2011Q4

REPORT INFORMATION
  Report Type: 
  Country: None (occurrence: None)
  Receive Date: 20111030
  Receipt Date: 20110517
  Transmission Date: 20120403
  Serious: No
  Sender: FDA-Public Use
  Company Number: US-AMGEN-USASP2011026549

PATIENT
  Age: 47 Year
  Sex: Female

DRUGS (2)
  1. ENBREL [Suspect]
     Indication: RHEUMATOID ARTHRITIS
     Dosage: 50 MG, QWK
     Dates: start: 20110426
  2. METHOTREXATE [Concomitant]
     Dosage: 8 MG, UNK
     Dates: start: 20100101

REACTIONS (3)
  - STRESS [None]
  - LOCAL SWELLING [None]
  - MUSCULOSKELETAL PAIN [None]
